FAERS Safety Report 22223946 (Version 1)
Quarter: 2023Q2

REPORT INFORMATION
  Report Type: Other
  Country: US (occurrence: US)
  Receive Date: 20230418
  Receipt Date: 20230418
  Transmission Date: 20230722
  Serious: No
  Sender: FDA-Public Use
  Company Number: US-UROVANT SCIENCES GMBH-202302-URV-000166

PATIENT
  Sex: Male
  Weight: 99.773 kg

DRUGS (3)
  1. GEMTESA [Suspect]
     Active Substance: VIBEGRON
     Indication: Urinary incontinence
     Dosage: 75 MG, QD
     Route: 048
  2. MELATONIN [Concomitant]
     Active Substance: MELATONIN
     Indication: Product used for unknown indication
  3. VITAMINS                           /00067501/ [Concomitant]
     Indication: Product used for unknown indication

REACTIONS (3)
  - Complication of device insertion [Unknown]
  - Urinary tract infection [Unknown]
  - Urinary incontinence [Unknown]
